FAERS Safety Report 20855425 (Version 1)
Quarter: 2022Q2

REPORT INFORMATION
  Report Type: Spontaneous
  Country: KR (occurrence: KR)
  Receive Date: 20220520
  Receipt Date: 20220520
  Transmission Date: 20220721
  Serious: Yes (Other)
  Sender: FDA-Public Use
  Company Number: DEX 2022-0068(0)

PATIENT

DRUGS (1)
  1. DEXMEDETOMIDINE HYDROCHLORIDE [Suspect]
     Active Substance: DEXMEDETOMIDINE HYDROCHLORIDE
     Indication: Sedative therapy
     Dosage: LOADING DOSE FOR 10 MIN FOLLOWED BY CONTINUOUS INFUSION
     Route: 042

REACTIONS (2)
  - Atelectasis [Recovered/Resolved]
  - Off label use [Unknown]
